FAERS Safety Report 19535507 (Version 2)
Quarter: 2021Q3

REPORT INFORMATION
  Report Type: Spontaneous
  Country: CA (occurrence: CA)
  Receive Date: 20210713
  Receipt Date: 20210719
  Transmission Date: 20211014
  Serious: Yes (Life-Threatening)
  Sender: FDA-Public Use
  Company Number: CA-PFIZER INC-2021838555

PATIENT
  Age: 4 Day
  Sex: Male
  Weight: 2 kg

DRUGS (11)
  1. ROCURONIUM BROMIDE. [Suspect]
     Active Substance: ROCURONIUM BROMIDE
     Indication: INDUCTION OF ANAESTHESIA
     Dosage: 4 MG, SINGLE
     Route: 042
  2. PROPOFOL. [Suspect]
     Active Substance: PROPOFOL
     Indication: INDUCTION OF ANAESTHESIA
     Dosage: 10 MG, SINGLE
     Route: 042
  3. ATROPINE SULFATE. [Suspect]
     Active Substance: ATROPINE SULFATE
     Dosage: 0.02 MG, SINGLE
     Route: 042
  4. DEXMEDETOMIDINE HYDROCHLORIDE. [Suspect]
     Active Substance: DEXMEDETOMIDINE HYDROCHLORIDE
     Indication: ANAESTHESIA
     Dosage: 0.5 UG
     Route: 042
  5. NACL [Concomitant]
     Active Substance: SODIUM CHLORIDE
  6. KETAMINE HCL [Suspect]
     Active Substance: KETAMINE HYDROCHLORIDE
     Indication: INDUCTION OF ANAESTHESIA
     Dosage: 5 MG, SINGLE
     Route: 042
  7. REMIFENTANIL [Suspect]
     Active Substance: REMIFENTANIL
     Indication: INDUCTION OF ANAESTHESIA
     Dosage: 10 UG, SINGLE
     Route: 042
  8. MEFOXIN [Concomitant]
     Active Substance: CEFOXITIN SODIUM
  9. KETAMINE HCL [Suspect]
     Active Substance: KETAMINE HYDROCHLORIDE
     Indication: ANAESTHESIA
     Dosage: 2 MG
     Route: 042
  10. SUFENTANIL [Suspect]
     Active Substance: SUFENTANIL
     Indication: ANAESTHESIA
     Dosage: 0.5 UG
     Route: 042
  11. ALBUMIN (HUMAN) [Concomitant]
     Active Substance: ALBUMIN HUMAN

REACTIONS (2)
  - Off label use [Recovered/Resolved]
  - Bradypnoea [Recovered/Resolved]
